FAERS Safety Report 5002155-7 (Version None)
Quarter: 2006Q2

REPORT INFORMATION
  Report Type: 
  Country: None (occurrence: None)
  Receive Date: 20060515
  Receipt Date: 20060505
  Transmission Date: 20061013
  Serious: Yes (Hospitalization)
  Sender: FDA-Public Use
  Company Number: 2006CG00836

PATIENT
  Sex: Female

DRUGS (2)
  1. ENTOCORT [Suspect]
     Indication: CROHN'S DISEASE
     Route: 048
     Dates: start: 20060401, end: 20060501
  2. PENTASA [Suspect]
     Indication: CROHN'S DISEASE
     Dates: start: 20060401, end: 20060501

REACTIONS (1)
  - PANCREATITIS ACUTE [None]
